FAERS Safety Report 24794070 (Version 1)
Quarter: 2024Q4

REPORT INFORMATION
  Report Type: Spontaneous
  Country: US (occurrence: US)
  Receive Date: 20241231
  Receipt Date: 20241231
  Transmission Date: 20250114
  Serious: No
  Sender: CSL BEHRING
  Company Number: US-BEH-2024188660

PATIENT
  Sex: Female

DRUGS (4)
  1. HIZENTRA [Suspect]
     Active Substance: HUMAN IMMUNOGLOBULIN G
     Indication: Hypogammaglobulinaemia
     Dosage: 4 MG, QD
     Route: 058
     Dates: start: 202211
  2. HIZENTRA [Suspect]
     Active Substance: HUMAN IMMUNOGLOBULIN G
     Dosage: 1 G, QD
     Route: 058
     Dates: start: 202211
  3. LIDOCAINE [Concomitant]
     Active Substance: LIDOCAINE
  4. PRILOCAINE [Concomitant]
     Active Substance: PRILOCAINE

REACTIONS (1)
  - Decreased appetite [Unknown]
